FAERS Safety Report 4902399-6 (Version None)
Quarter: 2006Q1

REPORT INFORMATION
  Report Type: 
  Country: None (occurrence: None)
  Receive Date: 20060207
  Receipt Date: 20050923
  Transmission Date: 20060701
  Serious: Yes (Other)
  Sender: FDA-Public Use
  Company Number: US-BRISTOL-MYERS SQUIBB COMPANY-13121256

PATIENT
  Age: 54 Year
  Sex: Female
  Weight: 228 kg

DRUGS (4)
  1. ESTRACE [Suspect]
     Indication: MENOPAUSAL SYMPTOMS
     Route: 048
     Dates: start: 19930301, end: 19970301
  2. CYCRIN [Suspect]
     Indication: MENOPAUSAL SYMPTOMS
     Route: 048
     Dates: start: 19930301, end: 19970301
  3. PREMPRO [Suspect]
     Indication: MENOPAUSAL SYMPTOMS
     Dosage: DOSAGE FORM=.625-2.5 MG
     Route: 048
     Dates: start: 19970401, end: 20010401
  4. COMBIPATCH [Suspect]

REACTIONS (1)
  - BREAST CANCER METASTATIC [None]
